FAERS Safety Report 24942959 (Version 1)
Quarter: 2025Q1

REPORT INFORMATION
  Report Type: Spontaneous
  Country: IN (occurrence: IN)
  Receive Date: 20250207
  Receipt Date: 20250207
  Transmission Date: 20250409
  Serious: Yes (Death, Life-Threatening)
  Sender: GE HEALTHCARE
  Company Number: IN-GE HEALTHCARE-2025CSU001324

PATIENT
  Age: 68 Year
  Sex: Male

DRUGS (1)
  1. VISIPAQUE [Suspect]
     Active Substance: IODIXANOL
     Indication: Computerised tomogram abdomen
     Route: 042
     Dates: start: 20250130, end: 20250130

REACTIONS (5)
  - Feeling abnormal [Fatal]
  - Cardio-respiratory arrest [Fatal]
  - Pulse absent [Fatal]
  - Blood pressure immeasurable [Fatal]
  - Oxygen saturation immeasurable [Fatal]

NARRATIVE: CASE EVENT DATE: 20250130
